FAERS Safety Report 10619152 (Version 6)
Quarter: 2015Q2

REPORT INFORMATION
  Report Type: Spontaneous
  Country: US (occurrence: US)
  Receive Date: 20141202
  Receipt Date: 20150629
  Transmission Date: 20150821
  Serious: Yes (Hospitalization, Other)
  Sender: FDA-Public Use
  Company Number: US-009507513-1412USA000426

PATIENT
  Sex: Female
  Weight: 63.49 kg

DRUGS (3)
  1. FOSAMAX [Suspect]
     Active Substance: ALENDRONATE SODIUM
     Dosage: 70 MG, UNK
     Route: 048
     Dates: end: 2007
  2. ALENDRONATE SODIUM. [Suspect]
     Active Substance: ALENDRONATE SODIUM
     Indication: OSTEOPOROSIS
     Dosage: 70 MG, QW
     Route: 048
     Dates: start: 2008, end: 2010
  3. FOSAMAX [Suspect]
     Active Substance: ALENDRONATE SODIUM
     Indication: OSTEOPOROSIS
     Dosage: 10 MG, UNK
     Route: 048
     Dates: start: 20000505, end: 20010330

REACTIONS (21)
  - Fracture nonunion [Unknown]
  - Adverse event [Unknown]
  - Cough [Unknown]
  - Medical device removal [Recovered/Resolved]
  - Internal fixation of fracture [Recovered/Resolved]
  - Surgery [Unknown]
  - Tooth loss [Unknown]
  - Bone graft [Recovered/Resolved]
  - Foot operation [Unknown]
  - Rheumatoid arthritis [Unknown]
  - Visual acuity reduced [Unknown]
  - Migraine [Unknown]
  - Gastrooesophageal reflux disease [Unknown]
  - Femur fracture [Recovered/Resolved]
  - Arthritis [Unknown]
  - Bursitis [Unknown]
  - Low turnover osteopathy [Unknown]
  - Haemorrhagic anaemia [Unknown]
  - Appendicectomy [Unknown]
  - Intramedullary rod insertion [Unknown]
  - Foot fracture [Unknown]

NARRATIVE: CASE EVENT DATE: 2002
